FAERS Safety Report 16987341 (Version 1)
Quarter: 2019Q4

REPORT INFORMATION
  Report Type: Spontaneous
  Country: BR (occurrence: BR)
  Receive Date: 20191102
  Receipt Date: 20191102
  Transmission Date: 20200122
  Serious: Yes (Other)
  Sender: FDA-Public Use
  Company Number: BR-ROCHE-2454530

PATIENT
  Age: 17 Year
  Sex: Female

DRUGS (2)
  1. RIVOTRIL [Suspect]
     Active Substance: CLONAZEPAM
     Route: 048
     Dates: start: 20191023
  2. RIVOTRIL [Suspect]
     Active Substance: CLONAZEPAM
     Indication: ANXIETY
     Route: 048

REACTIONS (6)
  - Nervousness [Unknown]
  - Hypoaesthesia oral [Unknown]
  - Intentional product misuse [Unknown]
  - Syncope [Unknown]
  - Accidental overdose [Unknown]
  - Headache [Unknown]

NARRATIVE: CASE EVENT DATE: 20191023
